FAERS Safety Report 26093899 (Version 1)
Quarter: 2025Q4

REPORT INFORMATION
  Report Type: Spontaneous
  Country: US (occurrence: US)
  Receive Date: 20251126
  Receipt Date: 20251126
  Transmission Date: 20260118
  Serious: No
  Sender: DR REDDYS
  Company Number: US-DRL-USA-USA/2025/11/017282

PATIENT
  Age: 87 Year

DRUGS (1)
  1. OMEPRAZOLE [Suspect]
     Active Substance: OMEPRAZOLE
     Indication: Hiatus hernia
     Dosage: QD, IN AM;  DELAYED-RELEASE CAPSULES, FOR ORAL USE
     Route: 048

REACTIONS (3)
  - Cough [Unknown]
  - Wheezing [Unknown]
  - Product use in unapproved indication [Unknown]
